FAERS Safety Report 18571244 (Version 1)
Quarter: 2020Q4

REPORT INFORMATION
  Report Type: Spontaneous
  Country: JP (occurrence: JP)
  Receive Date: 20201202
  Receipt Date: 20201202
  Transmission Date: 20210114
  Serious: Yes (Other)
  Sender: FDA-Public Use
  Company Number: JP-OTSUKA-2020_029777AA

PATIENT
  Sex: Female

DRUGS (2)
  1. SAMSCA [Suspect]
     Active Substance: TOLVAPTAN
     Indication: CONGENITAL CYSTIC KIDNEY DISEASE
     Dosage: 6 TABLETS, UNK
     Route: 048
  2. SAMSCA [Suspect]
     Active Substance: TOLVAPTAN
     Dosage: 2 TABLETS, UNK
     Route: 048

REACTIONS (1)
  - Renal impairment [Unknown]
